FAERS Safety Report 4996767-4 (Version None)
Quarter: 2006Q2

REPORT INFORMATION
  Report Type: 
  Country: None (occurrence: None)
  Receive Date: 20060508
  Receipt Date: 20060508
  Transmission Date: 20061013
  Serious: Yes (Life-Threatening, Hospitalization)
  Sender: FDA-Public Use
  Company Number: None

PATIENT
  Sex: Male
  Weight: 85.2762 kg

DRUGS (9)
  1. AVASTIN [Suspect]
     Indication: HEPATIC NEOPLASM MALIGNANT
     Dosage: 5 MG/KG IV Q2 WEEKS
     Route: 042
     Dates: start: 20041018, end: 20060501
  2. LIPITOR [Concomitant]
  3. AVANDIA [Concomitant]
  4. ZOFRAN [Concomitant]
  5. ATIVAN [Concomitant]
  6. METFORMIN [Concomitant]
  7. LASIX [Concomitant]
  8. AMITRIPTYLINE HCL [Concomitant]
  9. FENTANYL [Concomitant]

REACTIONS (18)
  - ABDOMINAL DISTENSION [None]
  - BREATH SOUNDS ABNORMAL [None]
  - CREPITATIONS [None]
  - DILATATION ATRIAL [None]
  - DRUG TOXICITY [None]
  - EJECTION FRACTION DECREASED [None]
  - FATIGUE [None]
  - ILL-DEFINED DISORDER [None]
  - NEUROPATHY [None]
  - OEDEMA [None]
  - OEDEMA PERIPHERAL [None]
  - PERCUSSION TEST ABNORMAL [None]
  - PITTING OEDEMA [None]
  - PLEURAL EFFUSION [None]
  - TREATMENT NONCOMPLIANCE [None]
  - URINE OUTPUT DECREASED [None]
  - VENTRICULAR DYSFUNCTION [None]
  - VENTRICULAR EXTRASYSTOLES [None]
